FAERS Safety Report 7895962-4 (Version None)
Quarter: 2011Q4

REPORT INFORMATION
  Report Type: 
  Country: None (occurrence: None)
  Receive Date: 20111106
  Receipt Date: 20110901
  Transmission Date: 20120403
  Serious: No
  Sender: FDA-Public Use
  Company Number: US-AMGEN-USASP2011044970

PATIENT
  Sex: Male

DRUGS (1)
  1. ENBREL [Suspect]
     Indication: PSORIASIS
     Dosage: 25 MG, QWK
     Dates: start: 20101001

REACTIONS (4)
  - PSORIASIS [None]
  - MALAISE [None]
  - TOOTHACHE [None]
  - DRUG INEFFECTIVE [None]
